FAERS Safety Report 7818075-6 (Version None)
Quarter: 2011Q4

REPORT INFORMATION
  Report Type: 
  Country: None (occurrence: None)
  Receive Date: 20111017
  Receipt Date: 20111012
  Transmission Date: 20120403
  Serious: Yes (Other)
  Sender: FDA-Public Use
  Company Number: BE-ABBOTT-11P-013-0853718-00

PATIENT
  Sex: Female

DRUGS (4)
  1. HUMIRA [Suspect]
  2. HUMIRA [Suspect]
     Indication: CROHN'S DISEASE
  3. L-DOPA [Suspect]
     Indication: NEUROLOGICAL SYMPTOM
  4. HUMIRA [Suspect]
     Dates: end: 20111012

REACTIONS (7)
  - PARKINSON'S DISEASE [None]
  - NEUROLOGICAL SYMPTOM [None]
  - OSTEOARTHRITIS [None]
  - MUSCLE RIGIDITY [None]
  - CENTRAL NERVOUS SYSTEM LESION [None]
  - ORTHOSTATIC HYPOTENSION [None]
  - NAUSEA [None]
